FAERS Safety Report 13012587 (Version 1)
Quarter: 2016Q4

REPORT INFORMATION
  Report Type: Spontaneous
  Country: ES (occurrence: ES)
  Receive Date: 20161209
  Receipt Date: 20161209
  Transmission Date: 20170207
  Serious: Yes (Other)
  Sender: FDA-Public Use
  Company Number: ES-FRESENIUS KABI-FK201609598

PATIENT
  Age: 57 Year
  Sex: Female

DRUGS (5)
  1. FLUOROURACIL (MANUFACTURER UNKNOWN) [Suspect]
     Active Substance: FLUOROURACIL
     Route: 041
  2. LEUCOVORIN CALCIUM (MANUFACTURER UNKNOWN) [Suspect]
     Active Substance: LEUCOVORIN CALCIUM
     Indication: ADENOCARCINOMA OF COLON
     Route: 065
     Dates: start: 201510
  3. AFLIBERCEPT [Suspect]
     Active Substance: AFLIBERCEPT
     Indication: ADENOCARCINOMA OF COLON
     Dates: start: 201510
  4. FLUOROURACIL (MANUFACTURER UNKNOWN) [Suspect]
     Active Substance: FLUOROURACIL
     Indication: ADENOCARCINOMA OF COLON
     Route: 040
     Dates: start: 201510
  5. IRINOTECAN (MANUFACTURER UNKNOWN) [Suspect]
     Active Substance: IRINOTECAN
     Indication: ADENOCARCINOMA OF COLON
     Route: 065
     Dates: start: 201510

REACTIONS (6)
  - Neutropenia [Unknown]
  - Respiratory tract infection [Unknown]
  - Pharyngotonsillitis [Unknown]
  - Mucosal inflammation [Unknown]
  - Hypertension [Unknown]
  - Neurotoxicity [Unknown]
